FAERS Safety Report 22192016 (Version 1)
Quarter: 2023Q2

REPORT INFORMATION
  Report Type: Spontaneous
  Country: US (occurrence: None)
  Receive Date: 20230407
  Receipt Date: 20230407
  Transmission Date: 20230722
  Serious: No
  Sender: FDA-Public Use
  Company Number: None

PATIENT
  Age: 29 Year
  Sex: Female
  Weight: 68.49 kg

DRUGS (1)
  1. PARAGARD T 380A [Suspect]
     Active Substance: COPPER

REACTIONS (14)
  - Fluid retention [None]
  - Weight increased [None]
  - Acne cystic [None]
  - Mood swings [None]
  - Anxiety [None]
  - Depression [None]
  - Libido decreased [None]
  - Gastrointestinal disorder [None]
  - Constipation [None]
  - Diarrhoea [None]
  - Arthralgia [None]
  - Arthritis [None]
  - Ovarian cyst [None]
  - Quality of life decreased [None]
